FAERS Safety Report 12142940 (Version 2)
Quarter: 2016Q1

REPORT INFORMATION
  Report Type: Report from Study
  Country: CA (occurrence: CA)
  Receive Date: 20160303
  Receipt Date: 20160322
  Transmission Date: 20160526
  Serious: Yes (Hospitalization, Other)
  Sender: FDA-Public Use
  Company Number: CA-TAKEDA-2016TUS003620

PATIENT
  Age: 24 Year
  Sex: Male

DRUGS (2)
  1. PREDNISONE. [Concomitant]
     Active Substance: PREDNISONE
  2. VEDOLIZUMAB [Suspect]
     Active Substance: VEDOLIZUMAB
     Indication: COLITIS ULCERATIVE
     Dosage: 300 MG, UNK
     Route: 042
     Dates: start: 20150611

REACTIONS (4)
  - Blindness [Not Recovered/Not Resolved]
  - Eye haemorrhage [Unknown]
  - Colectomy [Unknown]
  - Exophthalmos [Unknown]

NARRATIVE: CASE EVENT DATE: 20160115
